FAERS Safety Report 11086348 (Version 1)
Quarter: 2015Q2

REPORT INFORMATION
  Report Type: Report from Study
  Country: CA (occurrence: CA)
  Receive Date: 20150504
  Receipt Date: 20150504
  Transmission Date: 20150821
  Serious: Yes (Hospitalization)
  Sender: FDA-Public Use
  Company Number: CA-ROCHE-1535691

PATIENT
  Age: 55 Year
  Sex: Male

DRUGS (4)
  1. POTASSIUM CHLORIDE SR [Concomitant]
     Indication: PROPHYLAXIS
     Route: 065
     Dates: start: 20150131, end: 20150131
  2. POTASSIUM CHLORIDE SR [Concomitant]
     Indication: HYPOKALAEMIA
  3. RITUXIMAB [Suspect]
     Active Substance: RITUXIMAB
     Indication: CHRONIC LYMPHOCYTIC LEUKAEMIA
     Dosage: LAST DOSE OF RITUXIMAB PRIOR TO UROSEPSIS: 12/JAN/2015.?DAY 1 OF EACH 28-DAY CYCLE
     Route: 042
     Dates: start: 20140825
  4. BENDAMUSTINE [Suspect]
     Active Substance: BENDAMUSTINE
     Indication: CHRONIC LYMPHOCYTIC LEUKAEMIA
     Dosage: LAST DOSE OF BENDAMUSTINE PRIOR TO UROSEPSIS:13/JAN/2015.?DAYS 1 AND 2 OF EACH 28-DAY CYCLE
     Route: 042
     Dates: start: 20140825

REACTIONS (1)
  - Anal fistula [Recovered/Resolved]

NARRATIVE: CASE EVENT DATE: 20150129
